FAERS Safety Report 6875349-3 (Version None)
Quarter: 2010Q3

REPORT INFORMATION
  Report Type: 
  Country: None (occurrence: None)
  Receive Date: 20100727
  Receipt Date: 20070712
  Transmission Date: 20110219
  Serious: Yes (Death, Other)
  Sender: FDA-Public Use
  Company Number: US-PFIZER INC-2006122866

PATIENT
  Sex: Male
  Weight: 119.8 kg

DRUGS (3)
  1. CELEBREX [Suspect]
     Indication: BACK PAIN
     Route: 048
     Dates: start: 19990101, end: 19991219
  2. CELEBREX [Suspect]
     Indication: PAIN IN EXTREMITY
  3. VIOXX [Suspect]
     Route: 048
     Dates: start: 19991230, end: 20000103

REACTIONS (1)
  - MYOCARDIAL INFARCTION [None]
